FAERS Safety Report 9843962 (Version 1)
Quarter: 2013Q4

REPORT INFORMATION
  Report Type: Spontaneous
  Country: US (occurrence: None)
  Receive Date: 20131223
  Receipt Date: 20131223
  Transmission Date: 20140711
  Serious: No
  Sender: FDA-Public Use
  Company Number: 1000049999

PATIENT
  Age: 35 Year
  Sex: Female

DRUGS (4)
  1. LINZESS (LINACLOTIDE) (290 MICROGRAM, CAPSULES) [Suspect]
     Indication: IRRITABLE BOWEL SYNDROME
     Dosage: 290 MCG (290 MCG, 1 IN 1 D), ORAL
     Route: 048
     Dates: start: 20131012, end: 20131012
  2. LINZESS (LINACLOTIDE) (290 MICROGRAM, CAPSULES) [Suspect]
     Indication: CONSTIPATION
     Dosage: 290 MCG (290 MCG, 1 IN 1 D), ORAL
     Route: 048
     Dates: start: 20131012, end: 20131012
  3. OXYCODONE (OXYCODONE) (OXYCODONE) [Concomitant]
  4. PRIVIGEN (IMMUNOGLOBULIN HUMAN NORMAL) (IMMUNOGLOBULIN HUMAN NORMAL) [Concomitant]

REACTIONS (2)
  - Rash macular [None]
  - Abdominal distension [None]
